FAERS Safety Report 5011304-6 (Version None)
Quarter: 2006Q2

REPORT INFORMATION
  Report Type: 
  Country: None (occurrence: None)
  Receive Date: 20060525
  Receipt Date: 20050930
  Transmission Date: 20061013
  Serious: Yes (Other)
  Sender: FDA-Public Use
  Company Number: ES-BOEHRINGER INGELHEIM PHARMACEUTICALS, INC.-2005-DE-04052GD

PATIENT

DRUGS (3)
  1. NEVIRAPINE [Suspect]
     Indication: HIV INFECTION
     Route: 048
  2. NEVIRAPINE [Suspect]
     Route: 048
  3. NRTI [Suspect]
     Indication: HIV INFECTION

REACTIONS (1)
  - DRUG INEFFECTIVE [None]
